FAERS Safety Report 13720133 (Version 3)
Quarter: 2018Q1

REPORT INFORMATION
  Report Type: Spontaneous
  Country: FR (occurrence: FR)
  Receive Date: 20170706
  Receipt Date: 20180307
  Transmission Date: 20180508
  Serious: Yes (Hospitalization, Other)
  Sender: FDA-Public Use
  Company Number: FR-UCBSA-2017026148

PATIENT
  Age: 30 Year
  Sex: Female
  Weight: 48 kg

DRUGS (5)
  1. KEPPRA [Suspect]
     Active Substance: LEVETIRACETAM
     Indication: OFF LABEL USE
  2. LAMICTAL [Concomitant]
     Active Substance: LAMOTRIGINE
     Indication: EPILEPSY
     Dosage: 75 MG, 2X/DAY (BID)
     Route: 048
     Dates: start: 201705
  3. KEPPRA [Suspect]
     Active Substance: LEVETIRACETAM
     Indication: OFF LABEL USE
     Dosage: 1000 MG, UNK
     Dates: end: 2017
  4. KEPPRA [Suspect]
     Active Substance: LEVETIRACETAM
     Indication: STATUS EPILEPTICUS
  5. KEPPRA [Suspect]
     Active Substance: LEVETIRACETAM
     Indication: JUVENILE MYOCLONIC EPILEPSY
     Dosage: 500 MG, 2X/DAY (BID)
     Route: 048
     Dates: start: 2006

REACTIONS (12)
  - Fatigue [Unknown]
  - Depression [Recovering/Resolving]
  - Alopecia [Not Recovered/Not Resolved]
  - Aggression [Recovering/Resolving]
  - Suicidal ideation [Recovered/Resolved]
  - Insomnia [Recovered/Resolved]
  - Loss of libido [Unknown]
  - Panic attack [Recovering/Resolving]
  - Off label use [Unknown]
  - Acne cystic [Recovering/Resolving]
  - Anxiety [Unknown]
  - Disturbance in attention [Recovered/Resolved]
